FAERS Safety Report 23219269 (Version 3)
Quarter: 2024Q4

REPORT INFORMATION
  Report Type: Spontaneous
  Country: JP (occurrence: JP)
  Receive Date: 20231122
  Receipt Date: 20241122
  Transmission Date: 20250115
  Serious: Yes (Death, Other)
  Sender: MERCK
  Company Number: JP-MSD-M2023-49916

PATIENT
  Age: 75 Year
  Sex: Male

DRUGS (3)
  1. KEYTRUDA [Suspect]
     Active Substance: PEMBROLIZUMAB
     Indication: Oesophageal carcinoma
     Dosage: 200 MILLIGRAM, Q3W
     Route: 041
  2. FLUOROURACIL [Concomitant]
     Active Substance: FLUOROURACIL
     Dosage: UNK
     Route: 065
  3. CISPLATIN [Concomitant]
     Active Substance: CISPLATIN
     Dosage: UNK
     Route: 065

REACTIONS (5)
  - Death [Fatal]
  - White blood cell count decreased [Unknown]
  - Neutrophil count decreased [Unknown]
  - Haemoglobin decreased [Unknown]
  - Lymphocyte count decreased [Unknown]
